FAERS Safety Report 6967361-0 (Version None)
Quarter: 2010Q3

REPORT INFORMATION
  Report Type: 
  Country: None (occurrence: None)
  Receive Date: 20100907
  Receipt Date: 20100903
  Transmission Date: 20110219
  Serious: Yes (Life-Threatening, Hospitalization, Disabling, Other)
  Sender: FDA-Public Use
  Company Number: IE-ASTRAZENECA-2010SE17471

PATIENT
  Age: 23122 Day
  Sex: Male

DRUGS (10)
  1. CRESTOR [Suspect]
     Indication: LIPID METABOLISM DISORDER
     Route: 048
     Dates: start: 20091005, end: 20100208
  2. ZESTRIL [Concomitant]
     Route: 048
  3. ESOMEPRAZOLE MAGNESIUM [Concomitant]
     Indication: GASTRITIS
     Route: 048
  4. ASPIRIN [Concomitant]
     Indication: CORONARY ARTERY DISEASE
     Route: 065
  5. EZETROL [Concomitant]
     Indication: HYPERLIPIDAEMIA
     Route: 065
  6. BISOPROLOL FUMARATE [Concomitant]
     Route: 065
  7. NIVADIL [Concomitant]
     Route: 065
  8. BUMETANIDE [Concomitant]
     Route: 065
  9. CYTACON [Concomitant]
     Route: 065
  10. THIAMINE HCL [Concomitant]
     Route: 065

REACTIONS (2)
  - RENAL TUBULAR NECROSIS [None]
  - RHABDOMYOLYSIS [None]
